FAERS Safety Report 5879350-8 (Version None)
Quarter: 2008Q3

REPORT INFORMATION
  Report Type: 
  Country: None (occurrence: None)
  Receive Date: 20080912
  Receipt Date: 20080905
  Transmission Date: 20090109
  Serious: Yes (Other)
  Sender: FDA-Public Use
  Company Number: A0736099A

PATIENT
  Sex: Male

DRUGS (9)
  1. WELLBUTRIN [Suspect]
     Indication: DEPRESSION
     Route: 048
     Dates: start: 20031001, end: 20070101
  2. XANAX [Suspect]
     Indication: DEPRESSION
     Route: 065
     Dates: start: 20031001, end: 20070101
  3. SEROQUEL [Suspect]
     Indication: DEPRESSION
     Route: 065
     Dates: start: 20031001, end: 20070101
  4. LEXAPRO [Suspect]
     Indication: DEPRESSION
     Route: 065
     Dates: start: 20031001, end: 20060101
  5. RESTORIL [Suspect]
     Indication: DEPRESSION
     Route: 065
     Dates: start: 20031001, end: 20070101
  6. CYMBALTA [Suspect]
     Indication: DEPRESSION
     Route: 065
     Dates: start: 20031001, end: 20070101
  7. ZOLOFT [Suspect]
  8. NEURONTIN [Suspect]
  9. TRAZODONE HCL [Suspect]

REACTIONS (45)
  - ANGER [None]
  - ANOREXIA [None]
  - ANXIETY [None]
  - BLOOD CHOLESTEROL ABNORMAL [None]
  - BLOOD PRESSURE INCREASED [None]
  - BLOOD TRIGLYCERIDES ABNORMAL [None]
  - BRUXISM [None]
  - COMMUNICATION DISORDER [None]
  - CONFUSIONAL STATE [None]
  - CONVULSION [None]
  - DEPRESSION [None]
  - DRUG DEPENDENCE [None]
  - DYSKINESIA [None]
  - ECONOMIC PROBLEM [None]
  - FEELING ABNORMAL [None]
  - HALLUCINATION [None]
  - HEAD INJURY [None]
  - HEADACHE [None]
  - HYPERHIDROSIS [None]
  - HYPERTENSION [None]
  - HYPOTHYROIDISM [None]
  - INAPPROPRIATE SCHEDULE OF DRUG ADMINISTRATION [None]
  - INSOMNIA [None]
  - INTENTIONAL OVERDOSE [None]
  - MEMORY IMPAIRMENT [None]
  - MENTAL DISORDER [None]
  - NIGHTMARE [None]
  - OVERDOSE [None]
  - PAIN [None]
  - PANCREATITIS [None]
  - PANIC REACTION [None]
  - PERFORMANCE STATUS DECREASED [None]
  - RENAL FAILURE [None]
  - ROAD TRAFFIC ACCIDENT [None]
  - SLEEP APNOEA SYNDROME [None]
  - SLEEP DISORDER [None]
  - STRESS [None]
  - SUICIDAL IDEATION [None]
  - SUICIDE ATTEMPT [None]
  - TARDIVE DYSKINESIA [None]
  - THYROID DISORDER [None]
  - TREATMENT NONCOMPLIANCE [None]
  - VOMITING [None]
  - WEIGHT DECREASED [None]
  - WITHDRAWAL SYNDROME [None]
